FAERS Safety Report 7843063-3 (Version None)
Quarter: 2011Q4

REPORT INFORMATION
  Report Type: 
  Country: None (occurrence: None)
  Receive Date: 20111025
  Receipt Date: 20111013
  Transmission Date: 20120403
  Serious: Yes (Hospitalization, Other)
  Sender: FDA-Public Use
  Company Number: US-BAYER-2011-015284

PATIENT
  Age: 17 Year
  Sex: Female
  Weight: 40.363 kg

DRUGS (9)
  1. PINDOLOL [Concomitant]
     Indication: TACHYCARDIA
     Dosage: 5 MG, UNK
     Route: 048
     Dates: start: 20061001, end: 20061201
  2. SODIUM BICARBONATE [Concomitant]
     Dosage: UNK UNK, TID
     Route: 048
  3. MAGNESIUM OXIDE [Concomitant]
     Dosage: UNK UNK, BID
     Route: 048
  4. ALEVE [Concomitant]
  5. YAZ [Suspect]
     Dosage: UNK
     Dates: start: 20060401, end: 20070401
  6. MIDODRINE HYDROCHLORIDE [Concomitant]
     Dosage: 5 MG, TID
     Route: 048
  7. IBUPROFEN [Concomitant]
  8. STRATTERA [Concomitant]
     Dosage: 60 MG, OM
     Dates: start: 20031101, end: 20061201
  9. FLORINEF ACETATE [Concomitant]
     Dosage: 5 MG, BID
     Route: 048
     Dates: start: 20031101, end: 20061201

REACTIONS (23)
  - GALLBLADDER INJURY [None]
  - DECREASED APPETITE [None]
  - ABDOMINAL PAIN UPPER [None]
  - INJURY [None]
  - ARRHYTHMIA [None]
  - NAUSEA [None]
  - ANHEDONIA [None]
  - CHOLECYSTITIS ACUTE [None]
  - PAIN [None]
  - DIARRHOEA [None]
  - VOMITING [None]
  - DYSPNOEA [None]
  - SYNCOPE [None]
  - CHEST PAIN [None]
  - ANXIETY [None]
  - HEART RATE INCREASED [None]
  - GASTRIC DISORDER [None]
  - PANIC ATTACK [None]
  - DIZZINESS [None]
  - WEIGHT DECREASED [None]
  - BLOOD PRESSURE DECREASED [None]
  - SCAR [None]
  - FEAR [None]
